FAERS Safety Report 14879416 (Version 3)
Quarter: 2018Q2

REPORT INFORMATION
  Report Type: Spontaneous
  Country: US (occurrence: US)
  Receive Date: 20180511
  Receipt Date: 20180604
  Transmission Date: 20180711
  Serious: No
  Sender: FDA-Public Use
  Company Number: US-PFIZER INC-2018192609

PATIENT
  Age: 78 Year
  Sex: Female

DRUGS (1)
  1. GABAPENTIN. [Suspect]
     Active Substance: GABAPENTIN
     Indication: ILL-DEFINED DISORDER
     Dosage: 600 MG, UNK

REACTIONS (4)
  - Nausea [Unknown]
  - Abdominal discomfort [Unknown]
  - Drug hypersensitivity [Unknown]
  - Drug ineffective for unapproved indication [Unknown]
